FAERS Safety Report 5753920-X (Version None)
Quarter: 2008Q2

REPORT INFORMATION
  Report Type: 
  Country: None (occurrence: None)
  Receive Date: 20080530
  Receipt Date: 20080529
  Transmission Date: 20081010
  Serious: Yes (Other)
  Sender: FDA-Public Use
  Company Number: D0056908A

PATIENT
  Age: 50 Year
  Sex: Male

DRUGS (1)
  1. RELENZA [Suspect]
     Indication: INFLUENZA
     Dosage: 5MG UNKNOWN
     Route: 055
     Dates: start: 20080401

REACTIONS (4)
  - ANAPHYLACTIC SHOCK [None]
  - DEPRESSION [None]
  - DYSPNOEA [None]
  - URTICARIA [None]
